FAERS Safety Report 5409120-6 (Version None)
Quarter: 2007Q3

REPORT INFORMATION
  Report Type: 
  Country: None (occurrence: None)
  Receive Date: 20070713
  Receipt Date: 20070509
  Transmission Date: 20080115
  Serious: Yes (Hospitalization, Other)
  Sender: FDA-Public Use
  Company Number: US-JNJFOC-20061204774

PATIENT
  Age: 23 Year
  Sex: Female
  Weight: 56.7 kg

DRUGS (3)
  1. ORTHO EVRA [Suspect]
     Indication: MENSTRUATION IRREGULAR
     Dosage: TRANSDERMAL
     Route: 062
     Dates: start: 20040418, end: 20040501
  2. LEXAPRO [Concomitant]
  3. SYNTHROID [Concomitant]

REACTIONS (3)
  - AFFECT LABILITY [None]
  - PULMONARY EMBOLISM [None]
  - SOMNOLENCE [None]
